FAERS Safety Report 8126455 (Version 4)
Quarter: 2012Q4

REPORT INFORMATION
  Report Type: 
  Country: US (occurrence: US)
  Receive Date: 20110908
  Receipt Date: 20121004
  Transmission Date: 20130627
  Serious: No
  Sender: FDA-Public Use
  Company Number: US-BRACCO-006693

PATIENT
  Sex: Female

DRUGS (3)
  1. CARDIOGEN-82 [Suspect]
     Indication: POSITRON EMISSION TOMOGRAM
     Dosage: administered 53.1 millicuries at rest and 52.6 millicuries at peak stress
     Dates: start: 20110407, end: 20110407
  2. CARDIOGEN-82 [Suspect]
     Indication: CHEST PAIN
     Dosage: administered 53.1 millicuries at rest and 52.6 millicuries at peak stress
     Dates: start: 20110407, end: 20110407
  3. LEXISCAN [Concomitant]
     Dates: start: 20110407, end: 20110407

REACTIONS (2)
  - Exposure to radiation [Unknown]
  - Product quality issue [None]
